FAERS Safety Report 14198654 (Version 1)
Quarter: 2017Q4

REPORT INFORMATION
  Report Type: Spontaneous
  Country: FR (occurrence: FR)
  Receive Date: 20171117
  Receipt Date: 20171117
  Transmission Date: 20180321
  Serious: Yes (Disabling)
  Sender: FDA-Public Use
  Company Number: FR-MERCK KGAA-2034490

PATIENT
  Sex: Female

DRUGS (9)
  1. ALPRAZOLAM. [Concomitant]
     Active Substance: ALPRAZOLAM
  2. PANTOPRAZOLE [Concomitant]
     Active Substance: PANTOPRAZOLE
  3. DOLIPRANE [Concomitant]
     Active Substance: ACETAMINOPHEN
  4. NOVOTHYROX [Suspect]
     Active Substance: LEVOTHYROXINE SODIUM
     Indication: PRODUCT USED FOR UNKNOWN INDICATION
     Dates: start: 2017
  5. CETIRIZINE [Concomitant]
     Active Substance: CETIRIZINE HYDROCHLORIDE
  6. SPIRIVA [Concomitant]
     Active Substance: TIOTROPIUM BROMIDE MONOHYDRATE
  7. VESICARE [Concomitant]
     Active Substance: SOLIFENACIN SUCCINATE
  8. ESCITALOPRAM [Concomitant]
     Active Substance: ESCITALOPRAM OXALATE
  9. CLONAZEPAM. [Concomitant]
     Active Substance: CLONAZEPAM

REACTIONS (19)
  - Mental disorder [Recovering/Resolving]
  - Dizziness [Recovering/Resolving]
  - Weight decreased [Recovering/Resolving]
  - Hospitalisation [None]
  - Dysstasia [Recovering/Resolving]
  - Gait disturbance [Recovering/Resolving]
  - Loss of personal independence in daily activities [Recovering/Resolving]
  - Disturbance in attention [Recovering/Resolving]
  - Alopecia [Recovering/Resolving]
  - Speech disorder [Recovering/Resolving]
  - Rib fracture [Recovering/Resolving]
  - Apathy [Recovering/Resolving]
  - Fall [Recovering/Resolving]
  - Head injury [Recovering/Resolving]
  - Decreased appetite [Recovering/Resolving]
  - Visual impairment [None]
  - Amnesia [Recovering/Resolving]
  - Aggression [Recovering/Resolving]
  - Asthenia [Recovering/Resolving]
